FAERS Safety Report 5727099-4 (Version None)
Quarter: 2008Q2

REPORT INFORMATION
  Report Type: 
  Country: None (occurrence: None)
  Receive Date: 20080505
  Receipt Date: 20080424
  Transmission Date: 20081010
  Serious: Yes (Disabling)
  Sender: FDA-Public Use
  Company Number: US-JNJFOC-20080206892

PATIENT
  Sex: Male
  Weight: 95.26 kg

DRUGS (2)
  1. LEVAQUIN [Suspect]
     Indication: EPIDIDYMITIS
     Route: 048
  2. ALEVE [Concomitant]
     Indication: TESTICULAR PAIN
     Route: 048

REACTIONS (23)
  - ABNORMAL FAECES [None]
  - BALANCE DISORDER [None]
  - ELECTROENCEPHALOGRAM ABNORMAL [None]
  - ENCEPHALOPATHY [None]
  - EXPOSURE TO TOXIC AGENT [None]
  - FOOD INTOLERANCE [None]
  - HEADACHE [None]
  - IMMUNE SYSTEM DISORDER [None]
  - INSOMNIA [None]
  - MENTAL DISORDER [None]
  - NERVE INJURY [None]
  - PAIN [None]
  - PANIC ATTACK [None]
  - PERIPHERAL SENSORY NEUROPATHY [None]
  - PETIT MAL EPILEPSY [None]
  - RASH [None]
  - SUICIDAL IDEATION [None]
  - TENDON INJURY [None]
  - TENDONITIS [None]
  - TREMOR [None]
  - VESTIBULAR NEURONITIS [None]
  - VISUAL DISTURBANCE [None]
  - WEIGHT DECREASED [None]
